FAERS Safety Report 8242186-7 (Version None)
Quarter: 2012Q1

REPORT INFORMATION
  Report Type: 
  Country: None (occurrence: None)
  Receive Date: 20120329
  Receipt Date: 20120320
  Transmission Date: 20120608
  Serious: Yes (Hospitalization, Other)
  Sender: FDA-Public Use
  Company Number: AR-AMGEN-ARGSP2012018398

PATIENT
  Age: 47 Year
  Sex: Female

DRUGS (3)
  1. ENBREL [Suspect]
     Dosage: UNK
     Dates: start: 20110601, end: 20111201
  2. ENBREL [Suspect]
     Indication: RHEUMATOID ARTHRITIS
     Dosage: 50 MG, WEEKLY
     Route: 058
     Dates: start: 20100331, end: 20110501
  3. LEFLUNOMIDE [Concomitant]
     Dosage: UNK

REACTIONS (7)
  - DEVICE BREAKAGE [None]
  - RHEUMATOID ARTHRITIS [None]
  - PAIN IN EXTREMITY [None]
  - FEMUR FRACTURE [None]
  - FEELING HOT [None]
  - FALL [None]
  - BURNING SENSATION [None]
